FAERS Safety Report 4658133-0 (Version None)
Quarter: 2005Q2

REPORT INFORMATION
  Report Type: 
  Country: None (occurrence: None)
  Receive Date: 20050509
  Receipt Date: 20050419
  Transmission Date: 20051028
  Serious: No
  Sender: FDA-Public Use
  Company Number: USA050290496

PATIENT
  Age: 22 Year
  Sex: Male
  Weight: 60 kg

DRUGS (1)
  1. STRATTERA [Suspect]
     Indication: ATTENTION DEFICIT/HYPERACTIVITY DISORDER
     Dosage: 60 MG DAY
     Dates: start: 20040601

REACTIONS (2)
  - ALANINE AMINOTRANSFERASE INCREASED [None]
  - WEIGHT INCREASED [None]
